FAERS Safety Report 12006963 (Version 1)
Quarter: 2016Q1

REPORT INFORMATION
  Report Type: Spontaneous
  Country: CN (occurrence: CN)
  Receive Date: 20160204
  Receipt Date: 20160204
  Transmission Date: 20160526
  Serious: Yes (Other)
  Sender: FDA-Public Use
  Company Number: CN-PFIZER INC-2016058461

PATIENT
  Age: 80 Year
  Sex: Male

DRUGS (1)
  1. VFEND [Suspect]
     Active Substance: VORICONAZOLE
     Indication: LUNG INFECTION
     Route: 048

REACTIONS (4)
  - Confusional state [Recovering/Resolving]
  - Agitation [Recovering/Resolving]
  - Opisthotonus [Recovering/Resolving]
  - Seizure [Recovering/Resolving]
